FAERS Safety Report 20852748 (Version 1)
Quarter: 2022Q2

REPORT INFORMATION
  Report Type: Spontaneous
  Country: US (occurrence: None)
  Receive Date: 20220519
  Receipt Date: 20220519
  Transmission Date: 20220721
  Serious: No
  Sender: FDA-Public Use
  Company Number: None

PATIENT
  Age: 51 Year
  Sex: Female
  Weight: 101.3 kg

DRUGS (1)
  1. CISPLATIN [Suspect]
     Active Substance: CISPLATIN
     Dates: end: 20210106

REACTIONS (8)
  - Blindness unilateral [None]
  - Headache [None]
  - Eye pain [None]
  - Nausea [None]
  - Vomiting [None]
  - Angle closure glaucoma [None]
  - Pupil fixed [None]
  - Procedural failure [None]

NARRATIVE: CASE EVENT DATE: 20210131
